FAERS Safety Report 4351140-7 (Version None)
Quarter: 2004Q2

REPORT INFORMATION
  Report Type: 
  Country: None (occurrence: None)
  Receive Date: 20040428
  Receipt Date: 20030321
  Transmission Date: 20050107
  Serious: Yes (Death)
  Sender: FDA-Public Use
  Company Number: NSADSS2003014444

PATIENT
  Age: 77 Year
  Sex: Male
  Weight: 83 kg

DRUGS (11)
  1. ULTRAM [Suspect]
     Indication: ARTHRITIS
     Dosage: 50 MG, ORAL
     Route: 048
     Dates: start: 20010301
  2. LASIX [Concomitant]
  3. VITAMIN E [Concomitant]
  4. COMBIVENT (UNSPECIFIED) COMBIVENT [Concomitant]
  5. PRILOSEC [Concomitant]
  6. COLCHICONE (COLCHICINE) [Concomitant]
  7. CARDURA [Concomitant]
  8. ZOCOR [Concomitant]
  9. XANAX [Concomitant]
  10. PREDNISONE [Concomitant]
  11. IRON (IRON) [Concomitant]

REACTIONS (1)
  - DEATH [None]
